FAERS Safety Report 8603221-7 (Version None)
Quarter: 2012Q3

REPORT INFORMATION
  Report Type: 
  Country: None (occurrence: None)
  Receive Date: 20120817
  Receipt Date: 20120816
  Transmission Date: 20120928
  Serious: Yes (Death)
  Sender: FDA-Public Use
  Company Number: US-ELI_LILLY_AND_COMPANY-US201208005037

PATIENT
  Sex: Female

DRUGS (2)
  1. VINORELBINE [Concomitant]
     Dosage: UNK, UNKNOWN
     Route: 065
  2. GEMZAR [Suspect]
     Dosage: 1384 MG, EVERY THREE WEEKS
     Route: 065
     Dates: start: 20110916, end: 20111104

REACTIONS (2)
  - OFF LABEL USE [None]
  - DEATH [None]
